FAERS Safety Report 8826014 (Version 2)
Quarter: 2012Q4

REPORT INFORMATION
  Report Type: Report from Study
  Country: IE (occurrence: IE)
  Receive Date: 20121005
  Receipt Date: 20121017
  Transmission Date: 20130627
  Serious: Yes (Hospitalization)
  Sender: FDA-Public Use
  Company Number: IE-GLAXOSMITHKLINE-B0824833C

PATIENT
  Age: 51 Year
  Sex: Female
  Weight: 75.6 kg

DRUGS (13)
  1. LAPATINIB [Suspect]
     Indication: BREAST CANCER
     Dosage: 1000MG Per day
     Route: 048
     Dates: start: 20120809
  2. DOCETAXEL [Suspect]
     Indication: BREAST CANCER
     Route: 042
     Dates: start: 20120809
  3. CARBOPLATIN [Suspect]
     Indication: BREAST CANCER
     Dosage: 790MG Cyclic
     Route: 042
     Dates: start: 20120809
  4. HERCEPTIN [Suspect]
     Indication: BREAST CANCER
     Dosage: 6MGK Cyclic
     Route: 042
     Dates: start: 20120809
  5. ESOMEPRAZOLE [Concomitant]
     Route: 048
     Dates: start: 20120815
  6. CENTRUM [Concomitant]
     Route: 048
     Dates: start: 20120817
  7. STILNOCT [Concomitant]
     Indication: SEDATION
     Route: 048
     Dates: start: 201206
  8. OXYBUTYNIN [Concomitant]
     Indication: POLLAKIURIA
     Route: 062
     Dates: start: 201106
  9. STEMETIL [Concomitant]
     Indication: VOMITING
     Route: 048
     Dates: start: 20120815
  10. UNSPECIFIED MEDICATION [Concomitant]
     Indication: DIARRHOEA
     Route: 048
     Dates: start: 20120815
  11. ONDANSETRON [Concomitant]
     Indication: NAUSEA
     Route: 048
     Dates: start: 20120905
  12. VALOID [Concomitant]
     Indication: NAUSEA
     Dosage: 150MG per day
     Route: 048
     Dates: start: 20120905
  13. LOSEC [Concomitant]
     Dosage: 40MG per day
     Route: 042

REACTIONS (3)
  - Nausea [Recovered/Resolved]
  - Fatigue [Recovered/Resolved]
  - Dehydration [Recovered/Resolved]
